FAERS Safety Report 8973748 (Version 1)
Quarter: 2012Q4

REPORT INFORMATION
  Report Type: 
  Country: US (occurrence: US)
  Receive Date: 20121218
  Receipt Date: 20121218
  Transmission Date: 20130627
  Serious: Yes (Other)
  Sender: FDA-Public Use
  Company Number: US-ELI_LILLY_AND_COMPANY-US201212000421

PATIENT
  Age: 71 Year
  Sex: Female

DRUGS (17)
  1. BYDUREON [Suspect]
     Indication: TYPE 2 DIABETES MELLITUS
     Dosage: 2 mg, weekly (1/W)
     Route: 058
     Dates: start: 201211
  2. GLYBURIDE/METFORMIN [Concomitant]
     Indication: TYPE 2 DIABETES MELLITUS
     Dosage: 4 DF, qd
  3. AVANDIA [Concomitant]
     Indication: TYPE 2 DIABETES MELLITUS
     Dosage: UNK
  4. CHLORTALIDONE [Concomitant]
     Dosage: 25 mg, qd
     Route: 048
  5. OMEPRAZOLE [Concomitant]
     Indication: GASTRITIS
     Dosage: 20 mg, qd
     Route: 048
  6. LOSARTAN [Concomitant]
     Dosage: 100 mg, qd
     Route: 048
  7. SIMVASTATIN [Concomitant]
     Dosage: 40 mg, qd
     Route: 048
  8. SYNTHROID [Concomitant]
     Dosage: 88 ug, qd
     Route: 048
  9. NIFEDIPINE [Concomitant]
     Dosage: 60 mg, qd
     Route: 048
  10. TRAMADOL [Concomitant]
     Dosage: 50 mg, bid
     Route: 048
  11. METOPROLOL [Concomitant]
     Dosage: 50 mg, qd
     Route: 048
  12. ENABLEX                            /01760401/ [Concomitant]
     Dosage: 15 mg, bid
     Route: 048
  13. VYTORIN [Concomitant]
     Dosage: 1 DF, qd
     Route: 048
  14. CLONIDINE [Concomitant]
     Dosage: 0.1 mg, each morning
     Route: 048
  15. CLONIDINE [Concomitant]
     Dosage: 0.2 mg, each evening
     Route: 048
  16. SPIRONOLACTONE [Concomitant]
     Indication: BLOOD PRESSURE
     Dosage: 25 mg, qd
     Route: 048
  17. METAMUCIL [Concomitant]
     Indication: CONSTIPATION
     Dosage: UNK

REACTIONS (20)
  - Coordination abnormal [Recovered/Resolved]
  - Loss of control of legs [Recovered/Resolved]
  - Balance disorder [Recovered/Resolved]
  - Sensation of heaviness [Unknown]
  - Cold sweat [Recovered/Resolved]
  - Contusion [Unknown]
  - Nodule [Unknown]
  - Abdominal pain [Not Recovered/Not Resolved]
  - Flatulence [Not Recovered/Not Resolved]
  - Constipation [Recovered/Resolved]
  - Diarrhoea [Unknown]
  - Decreased appetite [Unknown]
  - Vomiting [Recovered/Resolved]
  - Asthenia [Recovered/Resolved]
  - Dizziness [Unknown]
  - Injection site pain [Recovered/Resolved]
  - Injection site mass [Recovering/Resolving]
  - Injection site pruritus [Not Recovered/Not Resolved]
  - Incorrect dose administered [Recovered/Resolved]
  - Inappropriate schedule of drug administration [Recovered/Resolved]
